FAERS Safety Report 7286179-5 (Version None)
Quarter: 2011Q1

REPORT INFORMATION
  Report Type: 
  Country: None (occurrence: None)
  Receive Date: 20110210
  Receipt Date: 20110128
  Transmission Date: 20110831
  Serious: Yes (Hospitalization, Other)
  Sender: FDA-Public Use
  Company Number: PHHY2011AU07410

PATIENT
  Sex: Male

DRUGS (22)
  1. CERTICAN [Suspect]
     Dosage: 10 MG, BID
  2. BACTRIM [Concomitant]
     Dosage: 01 TAB M, W, F
  3. FRUSEMIDE [Concomitant]
     Dosage: 40 MG, BID
     Route: 048
  4. OXYCONTIN [Concomitant]
     Dosage: 30 MG, BID
  5. ASPIRIN [Concomitant]
     Dosage: 100 MG, QD
  6. MAGMIN [Concomitant]
     Dosage: 500 MG, BID
  7. COLOXYL WITH SENNA [Concomitant]
  8. MYCOPHENOLATE MOFETIL [Concomitant]
     Dosage: 1500 MG, BID
  9. LAMIVUDINE [Concomitant]
     Dosage: 100 MG, QD
  10. LEVETIRACETAM [Concomitant]
     Dosage: 750 MG, BID
  11. GABAPENTIN [Concomitant]
     Dosage: 100 MG, TID
  12. OXYCODONE HCL [Concomitant]
     Dosage: 10 MG, Q2H
  13. METHYLPREDNISOLONE [Concomitant]
     Indication: TRANSPLANT REJECTION
     Dosage: 500 MG
     Route: 042
  14. MOVICOL [Concomitant]
  15. ENOXAPARIN SODIUM [Concomitant]
     Dosage: 40 MG, QD
     Route: 058
  16. STEROIDS NOS [Concomitant]
  17. SLOW-K [Concomitant]
  18. AMITRIPTYLINE HCL [Concomitant]
     Dosage: 25 MG, NOCTE
  19. NOVOMIX 30 [Concomitant]
     Dosage: 38 U, UNK
     Route: 058
  20. ESOMEPRAZOLE [Concomitant]
     Dosage: 40 MG, QD
  21. PARACETAMOL [Concomitant]
     Dosage: 1 G, QD
     Route: 048
  22. PRAVASTATIN [Concomitant]
     Dosage: 20 MG, NOCTE

REACTIONS (5)
  - MALABSORPTION [None]
  - NEUTROPHIL COUNT INCREASED [None]
  - LYMPHOCYTE COUNT DECREASED [None]
  - TRANSPLANT REJECTION [None]
  - MONOCYTE COUNT INCREASED [None]
